FAERS Safety Report 15339270 (Version 2)
Quarter: 2018Q3

REPORT INFORMATION
  Report Type: Spontaneous
  Country: US (occurrence: US)
  Receive Date: 20180831
  Receipt Date: 20180924
  Transmission Date: 20181010
  Serious: Yes (Life-Threatening, Other)
  Sender: FDA-Public Use
  Company Number: US-NOVOPROD-619177

PATIENT
  Age: 2 Day
  Sex: Female
  Weight: 2.8 kg

DRUGS (1)
  1. NOVOLOG [Suspect]
     Active Substance: INSULIN ASPART
     Indication: TYPE 2 DIABETES MELLITUS
     Dosage: 16+16+16
     Route: 015
     Dates: start: 20180424, end: 20180625

REACTIONS (3)
  - Foetal exposure during pregnancy [Recovered/Resolved]
  - Jaundice neonatal [Recovered/Resolved]
  - Umbilical cord compression [Recovered/Resolved]

NARRATIVE: CASE EVENT DATE: 20171020
